FAERS Safety Report 9586837 (Version 1)
Quarter: 2013Q4

REPORT INFORMATION
  Report Type: Spontaneous
  Country: US (occurrence: US)
  Receive Date: 20131003
  Receipt Date: 20131003
  Transmission Date: 20140711
  Serious: No
  Sender: FDA-Public Use
  Company Number: US-BAXTER-2013BAX001096

PATIENT
  Age: 43 Year
  Sex: Female

DRUGS (3)
  1. DIANEAL LOW CALCIUM [Suspect]
     Indication: PERITONEAL DIALYSIS
     Route: 033
     Dates: end: 20130115
  2. DIANEAL PD2 [Suspect]
     Indication: PERITONEAL DIALYSIS
     Route: 033
     Dates: end: 20130115
  3. DIANEAL LOW CALCIUM (ULTRABAG) [Suspect]
     Indication: PERITONEAL DIALYSIS
     Route: 033
     Dates: end: 20130115

REACTIONS (8)
  - Localised infection [Recovering/Resolving]
  - Umbilical hernia [Unknown]
  - Cyst [Unknown]
  - Abscess [Recovering/Resolving]
  - Influenza [Unknown]
  - Nasopharyngitis [Unknown]
  - Ear pain [Unknown]
  - Nausea [Unknown]
